FAERS Safety Report 7214924-3 (Version None)
Quarter: 2011Q1

REPORT INFORMATION
  Report Type: 
  Country: None (occurrence: None)
  Receive Date: 20110107
  Receipt Date: 20100901
  Transmission Date: 20110831
  Serious: No
  Sender: FDA-Public Use
  Company Number: A0860000A

PATIENT
  Age: 72 Year
  Sex: Female

DRUGS (10)
  1. LOVAZA [Suspect]
     Dosage: 4CAP PER DAY
     Route: 048
     Dates: start: 20091201
  2. DIGOXIN [Concomitant]
  3. SPIRONOLACTONE [Concomitant]
  4. WARFARIN [Concomitant]
  5. VITAMIN B-12 [Concomitant]
  6. JANUVIA [Concomitant]
  7. COREG CR [Concomitant]
  8. SIMVASTATIN [Concomitant]
  9. LISINOPRIL [Concomitant]
  10. LEVOTHYROXINE [Concomitant]

REACTIONS (3)
  - RETCHING [None]
  - PARAESTHESIA ORAL [None]
  - PRODUCT QUALITY ISSUE [None]
